FAERS Safety Report 11589323 (Version 3)
Quarter: 2015Q4

REPORT INFORMATION
  Report Type: Spontaneous
  Country: DE (occurrence: DE)
  Receive Date: 20151002
  Receipt Date: 20151125
  Transmission Date: 20160304
  Serious: Yes (Hospitalization, Other)
  Sender: FDA-Public Use
  Company Number: DE-JNJFOC-20150920756

PATIENT
  Age: 52 Year
  Sex: Male
  Weight: 88 kg

DRUGS (2)
  1. STELARA [Suspect]
     Active Substance: USTEKINUMAB
     Indication: PSORIASIS
     Route: 058
     Dates: start: 20141220, end: 20150622
  2. ENALAPRIL [Concomitant]
     Active Substance: ENALAPRIL
     Dosage: DOSE: 1-0-0
     Route: 065
     Dates: start: 2003

REACTIONS (14)
  - Renal tubular disorder [Unknown]
  - Acute prerenal failure [Recovered/Resolved]
  - Diarrhoea [Unknown]
  - Tachycardia [Unknown]
  - Abdominal pain upper [Unknown]
  - Anaphylactic reaction [Recovering/Resolving]
  - Hypokalaemia [Unknown]
  - Vomiting [Unknown]
  - Left ventricular hypertrophy [Recovering/Resolving]
  - Syncope [Unknown]
  - Renal mass [Unknown]
  - Nausea [Unknown]
  - Bundle branch block left [Unknown]
  - Hypertension [Unknown]

NARRATIVE: CASE EVENT DATE: 20150829
